FAERS Safety Report 7012427-2 (Version None)
Quarter: 2010Q3

REPORT INFORMATION
  Report Type: 
  Country: None (occurrence: None)
  Receive Date: 20100924
  Receipt Date: 20100913
  Transmission Date: 20110219
  Serious: Yes (Hospitalization)
  Sender: FDA-Public Use
  Company Number: FR-SANOFI-AVENTIS-2010SA055064

PATIENT
  Age: 81 Year
  Sex: Female

DRUGS (20)
  1. LOVENOX [Suspect]
     Route: 058
     Dates: start: 20100517, end: 20100611
  2. PLAVIX [Suspect]
     Route: 048
     Dates: start: 20100517, end: 20100521
  3. KARDEGIC [Suspect]
     Route: 048
     Dates: start: 20100514, end: 20100521
  4. TOPIRAMATE [Suspect]
     Indication: EPILEPSY
     Dosage: 16-MAY-2010: 50-0-50 (MG).
     Route: 048
     Dates: start: 20100516, end: 20100516
  5. TOPIRAMATE [Suspect]
     Dosage: 17-MAY-2010: 100-0-100 (MG).
     Route: 048
     Dates: start: 20100517, end: 20100520
  6. TOPIRAMATE [Suspect]
     Dosage: 21-MAY-2010: 50-0-100 (MG)
     Route: 048
     Dates: start: 20100521, end: 20100524
  7. TOPIRAMATE [Suspect]
     Dosage: 25-MAY-2010: 50-0-50 (MG)
     Route: 048
     Dates: start: 20100525, end: 20100525
  8. TOPIRAMATE [Suspect]
     Dosage: 25-MAY-2010: 50-0-50 (MG)
     Route: 048
     Dates: start: 20100526, end: 20100527
  9. TOPIRAMATE [Suspect]
     Dosage: 28-MAY-2010: 0-0-25 (MG).
     Route: 048
     Dates: start: 20100528, end: 20100530
  10. TOPIRAMATE [Suspect]
     Dosage: 07-JUN-2010: 100-0-100 (MG).
     Route: 048
     Dates: start: 20100607
  11. LEXOMIL [Suspect]
     Route: 048
     Dates: start: 20100515
  12. MOPRAL [Suspect]
     Route: 048
     Dates: start: 20100515
  13. NIMOTOP [Concomitant]
     Route: 048
     Dates: start: 20100521
  14. AMITRIPTYLINE HCL [Concomitant]
     Route: 042
     Dates: start: 20100516, end: 20100517
  15. TRAMADOL HCL [Concomitant]
     Route: 048
     Dates: start: 20100515, end: 20100516
  16. SOLU-MEDROL [Concomitant]
     Route: 065
     Dates: start: 20100514, end: 20100514
  17. PRIMPERAN TAB [Concomitant]
     Route: 042
     Dates: start: 20100515, end: 20100516
  18. PERFALGAN [Concomitant]
     Route: 042
     Dates: start: 20100514
  19. PROFENID [Concomitant]
     Route: 042
     Dates: start: 20100514, end: 20100515
  20. ASPEGIC 325 [Concomitant]
     Route: 042
     Dates: start: 20100514, end: 20100514

REACTIONS (1)
  - NEUTROPENIA [None]
